FAERS Safety Report 6287521-4 (Version None)
Quarter: 2009Q3

REPORT INFORMATION
  Report Type: 
  Country: None (occurrence: None)
  Receive Date: 20090728
  Receipt Date: 20090721
  Transmission Date: 20100115
  Serious: Yes (Hospitalization)
  Sender: FDA-Public Use
  Company Number: US-GILEAD-2009-0023245

PATIENT
  Sex: Female

DRUGS (7)
  1. LETAIRIS [Suspect]
     Indication: PULMONARY ARTERIAL HYPERTENSION
     Route: 048
     Dates: start: 20090227, end: 20090701
  2. REVATIO [Concomitant]
     Indication: PULMONARY ARTERIAL HYPERTENSION
  3. ADVAIR HFA [Concomitant]
  4. FLUCON ACET SOL [Concomitant]
  5. MORPHINE SULFATE [Concomitant]
     Indication: PAIN
  6. DULCOLAX [Concomitant]
     Indication: CONSTIPATION
  7. MIRALAX [Concomitant]

REACTIONS (5)
  - DYSPHAGIA [None]
  - EPISTAXIS [None]
  - EYE IRRITATION [None]
  - PNEUMONIA [None]
  - WEIGHT INCREASED [None]
